FAERS Safety Report 6583531-8 (Version None)
Quarter: 2010Q1

REPORT INFORMATION
  Report Type: 
  Country: None (occurrence: None)
  Receive Date: 20100216
  Receipt Date: 20100213
  Transmission Date: 20100710
  Serious: Yes (Death)
  Sender: FDA-Public Use
  Company Number: PHHY2010MX08273

PATIENT
  Age: 73 Year
  Sex: Male

DRUGS (1)
  1. DIOVAN [Suspect]
     Indication: HYPERTENSION
     Dosage: 1 TABLET (160 MG) PER DAY
     Route: 048
     Dates: start: 20100201

REACTIONS (1)
  - CARDIAC DISORDER [None]
